FAERS Safety Report 15729307 (Version 1)
Quarter: 2018Q4

REPORT INFORMATION
  Report Type: Spontaneous
  Country: CA (occurrence: CA)
  Receive Date: 20181217
  Receipt Date: 20181217
  Transmission Date: 20190205
  Serious: Yes (Hospitalization)
  Sender: FDA-Public Use
  Company Number: CA-MYLANLABS-2018M1092009

PATIENT
  Age: 63 Year
  Sex: Female

DRUGS (3)
  1. PHENYTOIN. [Suspect]
     Active Substance: PHENYTOIN
     Indication: GENERALISED TONIC-CLONIC SEIZURE
     Route: 040
  2. PHENYTOIN. [Suspect]
     Active Substance: PHENYTOIN
     Dosage: EACH EVENING
     Route: 048
  3. CLOZAPINE. [Concomitant]
     Active Substance: CLOZAPINE
     Indication: SCHIZOPHRENIA
     Route: 065

REACTIONS (5)
  - Asterixis [Unknown]
  - Toxicity to various agents [Recovering/Resolving]
  - Ataxia [Unknown]
  - Nystagmus [Unknown]
  - Rhabdomyolysis [Recovered/Resolved]
